FAERS Safety Report 17679535 (Version 2)
Quarter: 2020Q3

REPORT INFORMATION
  Report Type: Spontaneous
  Country: ES (occurrence: US)
  Receive Date: 20200417
  Receipt Date: 20200806
  Transmission Date: 20201102
  Serious: Yes (Death, Hospitalization)
  Sender: FDA-Public Use
  Company Number: ES-ACCORD-179070

PATIENT
  Age: 77 Year
  Sex: Female
  Weight: 67.8 kg

DRUGS (8)
  1. DAPSONA [Concomitant]
     Active Substance: DAPSONE
     Dates: start: 20191106
  2. RITUXIMAB. [Suspect]
     Active Substance: RITUXIMAB
     Indication: DIFFUSE LARGE B-CELL LYMPHOMA
     Dosage: DAY 1 OF EACH 28?DAY CYCLE
     Route: 042
     Dates: start: 20191107, end: 20191107
  3. FUROSEMIDE. [Concomitant]
     Active Substance: FUROSEMIDE
     Dates: start: 2018
  4. LAMIVUDINE. [Concomitant]
     Active Substance: LAMIVUDINE
     Dates: start: 20181119
  5. BENDAMUSTINE/BENDAMUSTINE HYDROCHLORIDE [Suspect]
     Active Substance: BENDAMUSTINE HYDROCHLORIDE
     Indication: DIFFUSE LARGE B-CELL LYMPHOMA
     Dosage: DAY 1 AND 2 OF EACH 28?DAY CYCLE
     Route: 042
     Dates: start: 20191107, end: 20191108
  6. OMEPRAZOLE. [Concomitant]
     Active Substance: OMEPRAZOLE
     Dates: start: 20191106
  7. METFORMIN [Concomitant]
     Active Substance: METFORMIN HYDROCHLORIDE
     Dates: start: 2018
  8. ACICLOVIR [Concomitant]
     Active Substance: ACYCLOVIR
     Dates: start: 20191106

REACTIONS (2)
  - Gastroenteritis [Recovered/Resolved]
  - Pneumonia [Fatal]

NARRATIVE: CASE EVENT DATE: 20191202
